FAERS Safety Report 5511025-7 (Version None)
Quarter: 2007Q4

REPORT INFORMATION
  Report Type: 
  Country: None (occurrence: None)
  Receive Date: 20071109
  Receipt Date: 20071102
  Transmission Date: 20080405
  Serious: Yes (Other)
  Sender: FDA-Public Use
  Company Number: US-JNJFOC-20071101240

PATIENT
  Age: 11 Year
  Sex: Female
  Weight: 54.43 kg

DRUGS (2)
  1. MYLANTA SUPREME TASTING CHERRY [Suspect]
     Indication: STOMACH DISCOMFORT
     Route: 048
  2. ZANTAC [Concomitant]
     Indication: GASTRIC DISORDER

REACTIONS (1)
  - THROAT TIGHTNESS [None]
